FAERS Safety Report 17043579 (Version 2)
Quarter: 2019Q4

REPORT INFORMATION
  Report Type: Report from Study
  Country: US (occurrence: US)
  Receive Date: 20191118
  Receipt Date: 20191219
  Transmission Date: 20200122
  Serious: Yes (Hospitalization)
  Sender: FDA-Public Use
  Company Number: US-ACTELION-A-NJ2016-146336

PATIENT
  Sex: Female

DRUGS (31)
  1. HCTZ [Concomitant]
     Active Substance: HYDROCHLOROTHIAZIDE
     Dosage: 12.5 MG, UNK
     Dates: start: 20110205
  2. REVATIO [Concomitant]
     Active Substance: SILDENAFIL CITRATE
     Dosage: 20 MG, UNK
     Dates: start: 20110104
  3. LOSARTAN POTASSIUM. [Concomitant]
     Active Substance: LOSARTAN POTASSIUM
  4. SILDENAFIL. [Concomitant]
     Active Substance: SILDENAFIL
  5. DIPYRIDAMOLE. [Concomitant]
     Active Substance: DIPYRIDAMOLE
     Dosage: 75 MG, UNK
     Dates: start: 20161010
  6. RESTASIS [Concomitant]
     Active Substance: CYCLOSPORINE
  7. CITRACAL MAX [Concomitant]
     Dosage: UNK
     Dates: start: 20110104
  8. KEFLEX [Concomitant]
     Active Substance: CEPHALEXIN
  9. XOPENEX [Concomitant]
     Active Substance: LEVALBUTEROL HYDROCHLORIDE
  10. PAXIL [Concomitant]
     Active Substance: PAROXETINE HYDROCHLORIDE
     Dosage: 10 MG, UNK
     Dates: start: 20150827
  11. AMOXICILLIN. [Concomitant]
     Active Substance: AMOXICILLIN
  12. FUROSEMIDE. [Concomitant]
     Active Substance: FUROSEMIDE
  13. CITRACAL [Concomitant]
     Active Substance: CALCIUM CITRATE
  14. ZOFRAN [Concomitant]
     Active Substance: ONDANSETRON HYDROCHLORIDE
     Dosage: 8 MG, UNK
     Dates: start: 20150827
  15. PERCOCET [Concomitant]
     Active Substance: ACETAMINOPHEN\OXYCODONE HYDROCHLORIDE
  16. SPIRONOLACTONE. [Concomitant]
     Active Substance: SPIRONOLACTONE
  17. PLAVIX [Concomitant]
     Active Substance: CLOPIDOGREL BISULFATE
  18. LASIX [Concomitant]
     Active Substance: FUROSEMIDE
  19. MYCOPHENOLATE [Concomitant]
     Active Substance: MYCOPHENOLIC ACID
  20. AZATHIOPRINE. [Concomitant]
     Active Substance: AZATHIOPRINE
  21. LEFLUNOMIDE. [Concomitant]
     Active Substance: LEFLUNOMIDE
  22. SYMBICORT [Concomitant]
     Active Substance: BUDESONIDE\FORMOTEROL FUMARATE DIHYDRATE
  23. OMEPRAZOLE. [Concomitant]
     Active Substance: OMEPRAZOLE
  24. HYDROXYCHLOROQUINE [Concomitant]
     Active Substance: HYDROXYCHLOROQUINE
     Dosage: 200 UNK, UNK
     Dates: start: 20110301
  25. AFRIN [Concomitant]
     Active Substance: OXYMETAZOLINE
     Dosage: 0.05% NASAL SPRAY
     Dates: start: 20170323
  26. HYDROCHLOROTH [Concomitant]
     Active Substance: HYDROCHLOROTHIAZIDE
  27. TRACLEER [Suspect]
     Active Substance: BOSENTAN
     Indication: PULMONARY ARTERIAL HYPERTENSION
     Dosage: 125 MG, BID
     Route: 048
     Dates: start: 20140120
  28. AMITIZA [Concomitant]
     Active Substance: LUBIPROSTONE
     Dosage: 8 MCG, UNK
     Dates: start: 20170518
  29. LISINOPRIL. [Concomitant]
     Active Substance: LISINOPRIL
     Dosage: 5 MG, UNK
     Dates: start: 20160427
  30. PRASTERONE [Concomitant]
     Active Substance: PRASTERONE
  31. PREDNISONE. [Concomitant]
     Active Substance: PREDNISONE

REACTIONS (6)
  - Skin infection [Not Recovered/Not Resolved]
  - Raynaud^s phenomenon [Not Recovered/Not Resolved]
  - Skin operation [Not Recovered/Not Resolved]
  - Skin injury [Not Recovered/Not Resolved]
  - Memory impairment [Recovered/Resolved]
  - Product dose omission [Recovered/Resolved]
